FAERS Safety Report 4716762-X (Version None)
Quarter: 2005Q3

REPORT INFORMATION
  Report Type: 
  Country: None (occurrence: None)
  Receive Date: 20050714
  Receipt Date: 20050708
  Transmission Date: 20060218
  Serious: Yes (Death)
  Sender: FDA-Public Use
  Company Number: 200512163BCC

PATIENT
  Age: 95 Year
  Sex: Female
  Weight: 45.3597 kg

DRUGS (2)
  1. ASPIRIN [Suspect]
     Indication: HEADACHE
     Dosage: IRR, ORAL
     Route: 048
  2. PAIN MEDICATION [Concomitant]

REACTIONS (1)
  - THYROID GLAND CANCER [None]
